FAERS Safety Report 4280787-1 (Version None)
Quarter: 2004Q1

REPORT INFORMATION
  Report Type: 
  Country: None (occurrence: None)
  Receive Date: 20040129
  Receipt Date: 20040106
  Transmission Date: 20041129
  Serious: Yes (Death)
  Sender: FDA-Public Use
  Company Number: 200410010JP

PATIENT
  Age: 62 Year
  Sex: Female

DRUGS (1)
  1. ARAVA [Suspect]
     Indication: RHEUMATOID ARTHRITIS
     Route: 048

REACTIONS (3)
  - ASPERGILLOSIS [None]
  - BILIARY TRACT INFECTION [None]
  - INTERSTITIAL LUNG DISEASE [None]
